FAERS Safety Report 20036065 (Version 2)
Quarter: 2021Q4

REPORT INFORMATION
  Report Type: Other
  Country: US (occurrence: None)
  Receive Date: 20211105
  Receipt Date: 20211115
  Transmission Date: 20220304
  Serious: Yes (Hospitalization)
  Sender: FDA-Public Use
  Company Number: US-ROCHE-2945415

PATIENT
  Sex: Female
  Weight: 64.411 kg

DRUGS (14)
  1. AVASTIN [Suspect]
     Active Substance: BEVACIZUMAB
     Indication: Ovarian cancer
     Route: 065
  2. CARVEDILOL [Concomitant]
     Active Substance: CARVEDILOL
  3. HYDRALAZINE HCL [Concomitant]
     Active Substance: HYDRALAZINE HYDROCHLORIDE
  4. ONDANSETRON HCL [Concomitant]
     Active Substance: ONDANSETRON HYDROCHLORIDE
  5. SUCRALFATE [Concomitant]
     Active Substance: SUCRALFATE
     Dosage: 1 GM/ 10 ML
  6. PACLITAXEL [Concomitant]
     Active Substance: PACLITAXEL
     Dates: start: 202101, end: 202103
  7. GEMCITABINE [Concomitant]
     Active Substance: GEMCITABINE
     Dates: start: 20210712
  8. LASIX [Concomitant]
     Active Substance: FUROSEMIDE
     Route: 048
  9. ACETAMINOPHEN [Concomitant]
     Active Substance: ACETAMINOPHEN
     Route: 048
  10. MENTHOL [Concomitant]
     Active Substance: MENTHOL
  11. DEXAMETHASONE [Concomitant]
     Active Substance: DEXAMETHASONE
  12. VALSARTAN [Concomitant]
     Active Substance: VALSARTAN
     Route: 048
  13. ZOFRAN [Concomitant]
     Active Substance: ONDANSETRON HYDROCHLORIDE
     Route: 048
  14. GEMZAR [Concomitant]
     Active Substance: GEMCITABINE HYDROCHLORIDE

REACTIONS (11)
  - Drug intolerance [Unknown]
  - Neutropenia [Unknown]
  - Intestinal obstruction [Unknown]
  - Ascites [Unknown]
  - Pelvic mass [Unknown]
  - Decreased appetite [Unknown]
  - Weight abnormal [Unknown]
  - Oedema peripheral [Recovered/Resolved]
  - Dyspnoea [Unknown]
  - Asthenia [Unknown]
  - Malnutrition [Unknown]
